FAERS Safety Report 7158125-6 (Version None)
Quarter: 2010Q4

REPORT INFORMATION
  Report Type: 
  Country: None (occurrence: None)
  Receive Date: 20101214
  Receipt Date: 20100428
  Transmission Date: 20110411
  Serious: No
  Sender: FDA-Public Use
  Company Number: US-ASTRAZENECA-2010SE19403

PATIENT
  Age: 71 Year
  Sex: Male

DRUGS (9)
  1. CRESTOR [Suspect]
     Route: 048
  2. CRESTOR [Suspect]
     Route: 048
  3. FLOMAX [Concomitant]
  4. METFORMIN [Concomitant]
  5. AVANDIA [Concomitant]
  6. COREG CR [Concomitant]
  7. PLAVIX [Concomitant]
  8. COQ10 [Concomitant]
  9. MULTI-VITAMINS [Concomitant]

REACTIONS (3)
  - CONTUSION [None]
  - GAIT DISTURBANCE [None]
  - MUSCLE SPASMS [None]
